FAERS Safety Report 5321397-4 (Version None)
Quarter: 2007Q2

REPORT INFORMATION
  Report Type: 
  Country: None (occurrence: None)
  Receive Date: 20070507
  Receipt Date: 20070507
  Transmission Date: 20071010
  Serious: Yes (Hospitalization)
  Sender: FDA-Public Use
  Company Number: None

PATIENT
  Age: 56 Year
  Sex: Male

DRUGS (2)
  1. SULFAMETHOXAZOLE AND TRIMETHOPRIM [Suspect]
     Indication: OSTEOMYELITIS
     Dosage: 1920/386MG   TID   IV
     Route: 042
     Dates: start: 20060914, end: 20061010
  2. FLUOXETINE [Suspect]
     Dosage: 20MG   QD   PO
     Route: 048
     Dates: start: 20041210, end: 20061010

REACTIONS (1)
  - HYPONATRAEMIA [None]
